FAERS Safety Report 5596449-4 (Version None)
Quarter: 2008Q1

REPORT INFORMATION
  Report Type: 
  Country: None (occurrence: None)
  Receive Date: 20080118
  Receipt Date: 20080114
  Transmission Date: 20080703
  Serious: Yes (Life-Threatening, Other)
  Sender: FDA-Public Use
  Company Number: US-PFIZER INC-2007086917

PATIENT
  Sex: Female
  Weight: 110.2 kg

DRUGS (14)
  1. CAMPTOSAR [Suspect]
     Indication: COLON CANCER METASTATIC
     Dosage: DAILY DOSE:389MG
     Route: 042
  2. CAMPTOSAR [Suspect]
     Indication: HEPATIC CANCER METASTATIC
  3. FLUOROURACIL [Suspect]
     Indication: COLON CANCER METASTATIC
     Dosage: DAILY DOSE:804MG
     Route: 042
  4. SEROQUEL [Concomitant]
  5. CYMBALTA [Concomitant]
  6. SYNTHROID [Concomitant]
  7. LUNESTA [Concomitant]
  8. CLONAZEPAM [Concomitant]
  9. PSYLLIUM [Concomitant]
  10. VITAMIN D [Concomitant]
  11. OXYCODONE [Concomitant]
  12. IBUPROFEN [Concomitant]
  13. MIRALAX [Concomitant]
     Dosage: FREQ:AS NEEDED
  14. LEUCOVORIN [Concomitant]
     Dosage: DAILY DOSE:804MG

REACTIONS (11)
  - ABDOMINAL PAIN [None]
  - ASTHENIA [None]
  - CHEST DISCOMFORT [None]
  - DIARRHOEA [None]
  - DIZZINESS [None]
  - ERUCTATION [None]
  - HYPOTENSION [None]
  - MUSCLE SPASMS [None]
  - MYOCARDIAL ISCHAEMIA [None]
  - OXYGEN SATURATION ABNORMAL [None]
  - VASCULAR OCCLUSION [None]
